FAERS Safety Report 24901212 (Version 2)
Quarter: 2025Q1

REPORT INFORMATION
  Report Type: Spontaneous
  Country: US (occurrence: US)
  Receive Date: 20250129
  Receipt Date: 20250130
  Transmission Date: 20250409
  Serious: Yes (Other)
  Sender: PURDUE
  Company Number: US-PURDUE-USA-2025-0314936

PATIENT
  Age: 54 Year
  Sex: Male

DRUGS (4)
  1. MORPHINE SULFATE [Suspect]
     Active Substance: MORPHINE SULFATE
     Indication: Product used for unknown indication
     Route: 065
  2. COCAINE [Suspect]
     Active Substance: COCAINE
     Indication: Product used for unknown indication
     Route: 065
  3. FENTANYL [Suspect]
     Active Substance: FENTANYL
     Indication: Product used for unknown indication
     Route: 065
  4. METHAMPHETAMINE [Suspect]
     Active Substance: METHAMPHETAMINE
     Indication: Product used for unknown indication
     Route: 065

REACTIONS (17)
  - Road traffic accident [Unknown]
  - Impaired driving ability [Unknown]
  - Drug abuse [Unknown]
  - Shock [Unknown]
  - Toxicity to various agents [Unknown]
  - Homicide [Unknown]
  - Drug screen positive [Unknown]
  - Disorientation [Unknown]
  - Mydriasis [Unknown]
  - Memory impairment [Unknown]
  - Somnolence [Unknown]
  - Physical assault [Unknown]
  - Pain [Unknown]
  - Injury [Unknown]
  - Dizziness [Unknown]
  - Disturbance in attention [Unknown]
  - Fatigue [Unknown]

NARRATIVE: CASE EVENT DATE: 20230517
